FAERS Safety Report 14238096 (Version 3)
Quarter: 2018Q1

REPORT INFORMATION
  Report Type: Spontaneous
  Country: JP (occurrence: JP)
  Receive Date: 20171130
  Receipt Date: 20180308
  Transmission Date: 20180508
  Serious: Yes (Other)
  Sender: FDA-Public Use
  Company Number: JP-AMGEN-JPNSP2017156076

PATIENT
  Age: 68 Year
  Sex: Female

DRUGS (8)
  1. NESP [Suspect]
     Active Substance: DARBEPOETIN ALFA
     Indication: NEPHROGENIC ANAEMIA
     Dosage: 60 MUG, QWK
     Route: 042
     Dates: start: 20140512, end: 20170927
  2. MYSLEE [Concomitant]
     Active Substance: ZOLPIDEM TARTRATE
     Dosage: 5 MG, QD
     Route: 048
  3. BASEN [Concomitant]
     Active Substance: VOGLIBOSE
     Dosage: 0.2 MG, TID
     Route: 048
  4. TAKEPRON [Concomitant]
     Active Substance: LANSOPRAZOLE
     Dosage: 15 MG, QD
     Route: 048
  5. NEUER [Concomitant]
     Active Substance: CETRAXATE HYDROCHLORIDE
     Dosage: 200 MG, TID
     Route: 048
  6. RISUMIC [Concomitant]
     Active Substance: AMEZINIUM METILSULFATE
     Dosage: 10 MG, 3 TIMES/WK
     Route: 048
  7. LIPACREON [Concomitant]
     Active Substance: PANCRELIPASE
     Dosage: 300 MG, TID
     Route: 048
  8. L CARTIN FF [Concomitant]
     Active Substance: LEVOCARNITINE
     Dosage: 1000 MG, 3 TIMES/WK
     Route: 041

REACTIONS (1)
  - Aplasia pure red cell [Not Recovered/Not Resolved]

NARRATIVE: CASE EVENT DATE: 20170927
